FAERS Safety Report 23244951 (Version 17)
Quarter: 2025Q2

REPORT INFORMATION
  Report Type: Spontaneous
  Country: CA (occurrence: CA)
  Receive Date: 20231130
  Receipt Date: 20250515
  Transmission Date: 20250716
  Serious: Yes (Hospitalization, Other)
  Sender: CELLTRION
  Company Number: CA-CELLTRION INC.-2023CA023011

PATIENT

DRUGS (30)
  1. INFLECTRA [Suspect]
     Active Substance: INFLIXIMAB-DYYB
     Indication: Colitis ulcerative
     Route: 042
     Dates: start: 20161115, end: 20180710
  2. INFLECTRA [Suspect]
     Active Substance: INFLIXIMAB-DYYB
     Route: 042
     Dates: start: 20180904, end: 20181227
  3. INFLECTRA [Suspect]
     Active Substance: INFLIXIMAB-DYYB
     Route: 042
     Dates: start: 20190123
  4. INFLECTRA [Suspect]
     Active Substance: INFLIXIMAB-DYYB
     Route: 042
     Dates: start: 20231218
  5. INFLECTRA [Suspect]
     Active Substance: INFLIXIMAB-DYYB
     Route: 042
     Dates: start: 20240212
  6. INFLECTRA [Suspect]
     Active Substance: INFLIXIMAB-DYYB
     Route: 042
     Dates: start: 20240606
  7. INFLECTRA [Suspect]
     Active Substance: INFLIXIMAB-DYYB
     Route: 042
  8. INFLECTRA [Suspect]
     Active Substance: INFLIXIMAB-DYYB
     Route: 042
     Dates: start: 20240715
  9. INFLECTRA [Suspect]
     Active Substance: INFLIXIMAB-DYYB
     Route: 042
     Dates: start: 20241122
  10. INFLECTRA [Suspect]
     Active Substance: INFLIXIMAB-DYYB
     Route: 042
     Dates: start: 20250211
  11. INFLECTRA [Suspect]
     Active Substance: INFLIXIMAB-DYYB
     Route: 042
     Dates: start: 20250331
  12. INFLECTRA [Suspect]
     Active Substance: INFLIXIMAB-DYYB
     Route: 042
     Dates: start: 20250506
  13. AMIODARONE [Concomitant]
     Active Substance: AMIODARONE
     Dates: start: 20171103
  14. ASPIRIN [Concomitant]
     Active Substance: ASPIRIN
     Route: 048
  15. BRILINTA [Concomitant]
     Active Substance: TICAGRELOR
     Route: 048
  16. BISOPROLOL [Concomitant]
     Active Substance: BISOPROLOL
     Dates: start: 2016
  17. CANNABIDIOL [Concomitant]
     Active Substance: CANNABIDIOL
  18. CIPRO [Concomitant]
     Active Substance: CIPROFLOXACIN HYDROCHLORIDE
     Route: 065
     Dates: start: 20171117
  19. CLOPIDOGREL [Concomitant]
     Active Substance: CLOPIDOGREL BISULFATE
     Dates: start: 20171103
  20. BUDESONIDE [Concomitant]
     Active Substance: BUDESONIDE
     Dates: start: 201609
  21. PERINDOPRIL ARGININE [Concomitant]
     Active Substance: PERINDOPRIL ARGININE
     Route: 048
  22. CRESTOR [Concomitant]
     Active Substance: ROSUVASTATIN CALCIUM
     Route: 048
  23. MORNIFLUMATE [Concomitant]
     Active Substance: MORNIFLUMATE
     Dates: start: 20171103
  24. IMURAN [Concomitant]
     Active Substance: AZATHIOPRINE
     Route: 048
     Dates: start: 201311
  25. METOPROLOL [Concomitant]
     Active Substance: METOPROLOL
     Route: 048
  26. VITAMINS NOS [Concomitant]
     Active Substance: VITAMINS
  27. NITROGLYCERIN [Concomitant]
     Active Substance: NITROGLYCERIN
     Route: 062
     Dates: start: 20171103
  28. PANTOPRAZOLE [Concomitant]
     Active Substance: PANTOPRAZOLE
  29. ROSUVASTATIN [Concomitant]
     Active Substance: ROSUVASTATIN
     Dates: start: 2016
  30. VENOFER [Concomitant]
     Active Substance: IRON SUCROSE

REACTIONS (8)
  - Knee arthroplasty [Unknown]
  - Oesophageal candidiasis [Unknown]
  - Oesophageal food impaction [Unknown]
  - Drug level increased [Recovering/Resolving]
  - Condition aggravated [Recovering/Resolving]
  - Osteoarthritis [Not Recovered/Not Resolved]
  - Therapeutic response shortened [Unknown]
  - Off label use [Unknown]

NARRATIVE: CASE EVENT DATE: 20210421
